FAERS Safety Report 7471551-0 (Version None)
Quarter: 2011Q2

REPORT INFORMATION
  Report Type: 
  Country: None (occurrence: None)
  Receive Date: 20110502
  Receipt Date: 20110421
  Transmission Date: 20111010
  Serious: Yes (Death)
  Sender: FDA-Public Use
  Company Number: 2011-1201

PATIENT
  Age: 61 Year
  Sex: Male

DRUGS (6)
  1. APO-GO PEN (APO-GO) (APOMORPHINE HYDROCHLORIDE) (APOMORPHINE HYDROCHLO [Suspect]
     Indication: PARKINSON'S DISEASE
     Dosage: (2-3 TIMES DAILY), SUBCUTANEOUS
     Route: 058
     Dates: start: 20070501
  2. MOTILIUM [Concomitant]
  3. STALEVO (STALEVO) [Concomitant]
  4. AZILECT [Concomitant]
  5. PRAMIPEXOLE DIHYDROCHLORIDE [Concomitant]
  6. MADOPAR (MADOPAR /00349201/) [Concomitant]

REACTIONS (2)
  - ASPHYXIA [None]
  - COMPLETED SUICIDE [None]
